FAERS Safety Report 10596680 (Version 3)
Quarter: 2014Q4

REPORT INFORMATION
  Report Type: Spontaneous
  Country: US (occurrence: US)
  Receive Date: 20141120
  Receipt Date: 20141125
  Transmission Date: 20150529
  Serious: No
  Sender: FDA-Public Use
  Company Number: US-PFIZER INC-2014317199

PATIENT
  Age: 66 Year
  Sex: Male
  Weight: 94.33 kg

DRUGS (3)
  1. VIAGRA [Suspect]
     Active Substance: SILDENAFIL CITRATE
     Dosage: UNK
  2. BABY ASPIRIN [Concomitant]
     Active Substance: ASPIRIN
     Dosage: 1 IN A DAY
  3. VIAGRA [Suspect]
     Active Substance: SILDENAFIL CITRATE
     Indication: ERECTILE DYSFUNCTION
     Dosage: 100MG TABLET BY CUTTING THE TABLET INTO 4 PIECES, ONE AT A TIME

REACTIONS (2)
  - Drug ineffective [Unknown]
  - Product quality issue [Unknown]
